FAERS Safety Report 11597032 (Version 4)
Quarter: 2016Q1

REPORT INFORMATION
  Report Type: Spontaneous
  Country: US (occurrence: US)
  Receive Date: 20151006
  Receipt Date: 20160125
  Transmission Date: 20160525
  Serious: Yes (Hospitalization, Disabling, Other)
  Sender: FDA-Public Use
  Company Number: US-ASTRAZENECA-2012SE16035

PATIENT
  Age: 48 Year
  Sex: Male
  Weight: 123.4 kg

DRUGS (14)
  1. AMLODIPINE [Concomitant]
     Active Substance: AMLODIPINE BESYLATE
     Route: 048
     Dates: start: 20090705
  2. LISINOPRIL. [Concomitant]
     Active Substance: LISINOPRIL
     Route: 048
     Dates: start: 20110826
  3. FUROSEMIDE. [Concomitant]
     Active Substance: FUROSEMIDE
  4. GLIMEPIRIDE. [Concomitant]
     Active Substance: GLIMEPIRIDE
     Route: 048
     Dates: start: 20090624
  5. CRESTOR [Suspect]
     Active Substance: ROSUVASTATIN CALCIUM
     Route: 048
     Dates: start: 2005
  6. SIMVASTATIN. [Concomitant]
     Active Substance: SIMVASTATIN
  7. SERTRALINE [Concomitant]
     Active Substance: SERTRALINE HYDROCHLORIDE
  8. CRESTOR [Suspect]
     Active Substance: ROSUVASTATIN CALCIUM
     Route: 048
     Dates: start: 20101122
  9. METOPROLOL. [Concomitant]
     Active Substance: METOPROLOL
     Indication: HYPERTENSION
  10. PLAVIX [Concomitant]
     Active Substance: CLOPIDOGREL BISULFATE
     Route: 048
     Dates: start: 20090705
  11. ALLOPURINOL. [Concomitant]
     Active Substance: ALLOPURINOL
     Route: 048
     Dates: start: 20110826
  12. SPIRONOLACTON [Concomitant]
     Active Substance: SPIRONOLACTONE
  13. METOLAZONE. [Concomitant]
     Active Substance: METOLAZONE
     Indication: OEDEMA
     Dates: start: 201409
  14. LASIX [Concomitant]
     Active Substance: FUROSEMIDE
     Indication: OEDEMA
     Dates: start: 201201

REACTIONS (19)
  - Acute kidney injury [Not Recovered/Not Resolved]
  - Obesity [Unknown]
  - Arrhythmia [Unknown]
  - Cardiomyopathy [Unknown]
  - Cardiovascular disorder [Unknown]
  - End stage renal disease [Unknown]
  - Hypertension [Unknown]
  - Ischaemic stroke [Unknown]
  - Coronary artery disease [Unknown]
  - Syncope [Unknown]
  - Diabetic retinopathy [Unknown]
  - Diabetic nephropathy [Unknown]
  - Cardiac failure congestive [Unknown]
  - Oedema [Unknown]
  - Type 2 diabetes mellitus [Not Recovered/Not Resolved]
  - Blood triglycerides increased [Not Recovered/Not Resolved]
  - Liver disorder [Unknown]
  - Myocardial infarction [Unknown]
  - Angina pectoris [Unknown]

NARRATIVE: CASE EVENT DATE: 2007
